FAERS Safety Report 9114371 (Version 1)
Quarter: 2013Q1

REPORT INFORMATION
  Report Type: Spontaneous
  Country: JP (occurrence: JP)
  Receive Date: 20130128
  Receipt Date: 20130128
  Transmission Date: 20140127
  Serious: Yes (Hospitalization)
  Sender: FDA-Public Use
  Company Number: JP-PFIZER INC-2013024674

PATIENT
  Sex: Female

DRUGS (3)
  1. ONE-ALPHA [Concomitant]
     Dosage: UNK
     Dates: end: 201208
  2. AZULFIDINE EN [Suspect]
     Dosage: UNK
     Route: 048
     Dates: start: 200808, end: 201208
  3. BONALON [Concomitant]
     Dosage: UNK
     Dates: end: 201208

REACTIONS (3)
  - Pneumonia [Recovered/Resolved]
  - Dermatitis [Not Recovered/Not Resolved]
  - Pollakiuria [Unknown]
